FAERS Safety Report 16518770 (Version 1)
Quarter: 2019Q3

REPORT INFORMATION
  Report Type: Spontaneous
  Country: GB (occurrence: GB)
  Receive Date: 20190702
  Receipt Date: 20190702
  Transmission Date: 20191004
  Serious: Yes (Other)
  Sender: FDA-Public Use
  Company Number: GB-SA-2019SA172482

PATIENT
  Age: 74 Year
  Sex: Female

DRUGS (20)
  1. GLYCERYL TRINITRATE [Concomitant]
     Active Substance: NITROGLYCERIN
     Dosage: 400MICROGRAMS/DOSE
     Route: 060
  2. CEFALEXIN [Concomitant]
     Active Substance: CEPHALEXIN
     Dosage: PT STATES DOESNT REALLY TAKE AS CAUSES GI UPSET
  3. CLOPIDOGREL BISULFATE. [Suspect]
     Active Substance: CLOPIDOGREL BISULFATE
     Dosage: 75 MG, QD
  4. CIPROFLOXACIN. [Concomitant]
     Active Substance: CIPROFLOXACIN
     Dosage: 1000 MG, QD
     Dates: start: 20181005
  5. SIMETHICONE (DIMETHICONE) [Concomitant]
     Active Substance: DIMETHICONE
     Dosage: 300 MG, QD
     Dates: start: 20180817
  6. ACIDEX [CALCIUM CARBONATE;SODIUM ALGINATE;SODIUM BICARBONATE] [Concomitant]
     Dosage: 10-20ML TO BE TAKEN AFTER MEALS AND AT BEDTIME PRN
  7. LOSARTAN. [Concomitant]
     Active Substance: LOSARTAN
     Dosage: 50 UNK
  8. CLENIL MODULITE [Concomitant]
     Active Substance: BECLOMETHASONE DIPROPIONATE
     Dosage: 100MICROGRAMS/DOSE INHALER
     Route: 055
  9. MONOMIL XL [Concomitant]
     Active Substance: ISOSORBIDE MONONITRATE
     Dosage: IN THE MORNING
  10. CARBOCISTEINE [Concomitant]
     Active Substance: CARBOCYSTEINE
     Dosage: 6 DF, QD
     Dates: start: 20180817
  11. PARACETAMOL [Concomitant]
     Active Substance: ACETAMINOPHEN
     Dosage: 1-2 FOUR TIMES A DAY PRN
  12. SUCRALFATE. [Concomitant]
     Active Substance: SUCRALFATE
     Dosage: (ONE HOUR BEFORE MEALS)
  13. LEVOTHYROXINE. [Concomitant]
     Active Substance: LEVOTHYROXINE
     Dosage: 100 UG, QD
  14. DYMISTA [Concomitant]
     Active Substance: AZELASTINE HYDROCHLORIDE\FLUTICASONE PROPIONATE
     Dosage: 50UG/137UG
     Dates: start: 20181109
  15. LOSARTAN. [Concomitant]
     Active Substance: LOSARTAN
     Dosage: 25 MG, QD
  16. MEBEVERINE [Concomitant]
     Active Substance: MEBEVERINE
     Dosage: 20 MINUTES BEFORE FOOD
     Dates: start: 20180816
  17. VENTOLIN [Concomitant]
     Active Substance: ALBUTEROL SULFATE
     Dosage: 100MICROGRAMS/DOSE EVOHALER 2 PUFFS
     Route: 055
  18. ESTRADIOL. [Concomitant]
     Active Substance: ESTRADIOL
     Dosage: 1 AT NIGHT FOR TWO WEEKS THEN ONE TWICE WEEKLY
     Dates: start: 20180817
  19. LANSOPRAZOLE. [Concomitant]
     Active Substance: LANSOPRAZOLE
     Dosage: 1-2 ONCE DAILY - PT ONLY TAKES PRN, STATES DOESN^T TAKE VERY OFTEN.
  20. TRAMADOL. [Concomitant]
     Active Substance: TRAMADOL
     Dosage: TWO TO BE TAKEN INITIALLY THEN ONE OR TWO TO BE TAKEN EVERY FOUR TO SIX HOURS
     Dates: start: 20180928

REACTIONS (1)
  - Blood blister [Recovered/Resolved]
